FAERS Safety Report 10127539 (Version 1)
Quarter: 2014Q2

REPORT INFORMATION
  Report Type: Spontaneous
  Country: FR (occurrence: FR)
  Receive Date: 20140428
  Receipt Date: 20140428
  Transmission Date: 20141212
  Serious: Yes (Hospitalization)
  Sender: FDA-Public Use
  Company Number: FR-MYLANLABS-2014S1008766

PATIENT
  Age: 35 Year
  Sex: Male

DRUGS (3)
  1. QUETIAPINE [Suspect]
     Indication: SCHIZOAFFECTIVE DISORDER
     Dosage: INITIAL DOSE 200 MG/DAY, GRADUALLY INCREASED TO 600 MG/DAY
     Route: 065
  2. ZUCLOPENTHIXOL [Interacting]
     Indication: SCHIZOAFFECTIVE DISORDER
     Dosage: 100 MG/DAY
     Route: 065
  3. LITHIUM [Concomitant]
     Indication: SCHIZOAFFECTIVE DISORDER
     Dosage: 800 MG/DAY
     Route: 065

REACTIONS (4)
  - Agitation [Recovered/Resolved]
  - Aggression [Recovered/Resolved]
  - Paradoxical drug reaction [Recovered/Resolved]
  - Drug interaction [Recovered/Resolved]
